FAERS Safety Report 16029342 (Version 1)
Quarter: 2019Q2

REPORT INFORMATION
  Report Type: Spontaneous
  Country: CL (occurrence: CL)
  Receive Date: 20190302
  Receipt Date: 20190302
  Transmission Date: 20190711
  Serious: Yes (Disabling)
  Sender: FDA-Public Use
  Company Number: None

PATIENT
  Age: 50 Year
  Sex: Female
  Weight: 65 kg

DRUGS (2)
  1. FASARAX HIDROXIZINA [Suspect]
     Active Substance: HYDROXYZINE HYDROCHLORIDE
     Indication: RASH
     Dosage: ?          QUANTITY:1 TABLET(S);?
     Route: 048
     Dates: start: 20190205, end: 20190226
  2. FLUOXETINE [Suspect]
     Active Substance: FLUOXETINE HYDROCHLORIDE
     Indication: DEPRESSION
     Dosage: ?          QUANTITY:3 TABLET(S);?
     Route: 048
     Dates: start: 20180130, end: 20190301

REACTIONS (8)
  - Product dose omission [None]
  - Dysphagia [None]
  - Treatment noncompliance [None]
  - Pruritus [None]
  - Drug interaction [None]
  - Joint swelling [None]
  - Eye swelling [None]
  - Rash [None]

NARRATIVE: CASE EVENT DATE: 20190201
